FAERS Safety Report 6444912-6 (Version None)
Quarter: 2009Q4

REPORT INFORMATION
  Report Type: 
  Country: None (occurrence: None)
  Receive Date: 20091117
  Receipt Date: 20091117
  Transmission Date: 20100525
  Serious: No
  Sender: FDA-Public Use
  Company Number: None

PATIENT
  Age: 58 Year
  Sex: Female

DRUGS (1)
  1. TECHNETIUM TC 99M MPI MDP [Suspect]
     Indication: BONE DISORDER
     Dosage: 22.5 MCI ONCE IV (RAC)    1 DOSE
     Route: 042
     Dates: start: 20091116

REACTIONS (1)
  - RASH [None]
